FAERS Safety Report 6686075-8 (Version None)
Quarter: 2010Q2

REPORT INFORMATION
  Report Type: 
  Country: None (occurrence: None)
  Receive Date: 20100419
  Receipt Date: 20100414
  Transmission Date: 20101027
  Serious: Yes (Death)
  Sender: FDA-Public Use
  Company Number: CHPA2010US06802

PATIENT

DRUGS (1)
  1. NICOTINE (NCH) [Suspect]
     Dosage: UNK, UNK
     Route: 062

REACTIONS (1)
  - CARDIAC ARREST [None]
